FAERS Safety Report 4852805-0 (Version None)
Quarter: 2005Q4

REPORT INFORMATION
  Report Type: 
  Country: None (occurrence: None)
  Receive Date: 20051212
  Receipt Date: 20051212
  Transmission Date: 20060501
  Serious: Yes (Other)
  Sender: FDA-Public Use
  Company Number: None

PATIENT
  Age: 25 Year
  Sex: Male
  Weight: 88.4514 kg

DRUGS (1)
  1. PAXIL [Suspect]
     Indication: IRRITABLE BOWEL SYNDROME
     Dosage: 30MG  TWICE A DAY PO
     Route: 048
     Dates: start: 19990201, end: 20050723

REACTIONS (13)
  - ABDOMINAL PAIN UPPER [None]
  - ANXIETY [None]
  - DEPRESSION [None]
  - FATIGUE [None]
  - GASTROINTESTINAL DISORDER [None]
  - GASTROOESOPHAGEAL REFLUX DISEASE [None]
  - INFLUENZA LIKE ILLNESS [None]
  - INSOMNIA [None]
  - MALAISE [None]
  - MUSCLE TWITCHING [None]
  - NIGHT SWEATS [None]
  - ORAL INTAKE REDUCED [None]
  - WEIGHT DECREASED [None]
